FAERS Safety Report 6754384-X (Version None)
Quarter: 2010Q2

REPORT INFORMATION
  Report Type: 
  Country: None (occurrence: None)
  Receive Date: 20100601
  Receipt Date: 20100519
  Transmission Date: 20101027
  Serious: Yes (Life-Threatening)
  Sender: FDA-Public Use
  Company Number: 2010AL003052

PATIENT
  Age: 74 Year
  Sex: Male
  Weight: 106 kg

DRUGS (5)
  1. ACETAMINOPHEN AND CODEINE PHOSPHATE [Suspect]
     Indication: BACK PAIN
     Dates: start: 20090318, end: 20090417
  2. VALSARTAN [Concomitant]
  3. INDAPAMIDE [Concomitant]
  4. SIMVASTATIN [Concomitant]
  5. OMEPRAZOLE [Concomitant]

REACTIONS (1)
  - DEEP VEIN THROMBOSIS [None]
